FAERS Safety Report 7705273-5 (Version None)
Quarter: 2011Q3

REPORT INFORMATION
  Report Type: 
  Country: None (occurrence: None)
  Receive Date: 20110824
  Receipt Date: 20110613
  Transmission Date: 20111222
  Serious: No
  Sender: FDA-Public Use
  Company Number: US-MYLANLABS-2011S1006493

PATIENT
  Age: 54 Year
  Sex: Female

DRUGS (18)
  1. ADDERALL 5 [Concomitant]
  2. VITAMIN D [Concomitant]
  3. GLUCOSAMINE [Concomitant]
  4. PRAZOSIN HCL [Concomitant]
  5. DILTIAZEM [Concomitant]
  6. ASCORBIC ACID [Concomitant]
  7. BLACK CURRANT OIL /01662903/ [Concomitant]
  8. AMBIEN [Concomitant]
  9. CABERGOLINE [Concomitant]
  10. VITAMIN B6 [Concomitant]
  11. MAGNESIUM [Concomitant]
  12. STRATTERA [Concomitant]
  13. VITAMIN B-12 [Concomitant]
  14. OMEGA 3 /00931501/ [Concomitant]
  15. MSM [Concomitant]
  16. ABILIFY [Concomitant]
  17. CALCIUM CARBONATE [Concomitant]
  18. VALACYCLOVIR HYDROCHLORIDE [Suspect]
     Indication: GENITAL HERPES
     Route: 048
     Dates: start: 20100708, end: 20110210

REACTIONS (2)
  - DRUG INEFFECTIVE [None]
  - HERPES VIRUS INFECTION [None]
